FAERS Safety Report 16232890 (Version 1)
Quarter: 2019Q2

REPORT INFORMATION
  Report Type: Spontaneous
  Country: US (occurrence: US)
  Receive Date: 20190423
  Receipt Date: 20190423
  Transmission Date: 20190711
  Serious: Yes (Other)
  Sender: FDA-Public Use
  Company Number: None

PATIENT
  Sex: Female

DRUGS (1)
  1. LIDOCAINE PAIN RELIEF PATCH [Suspect]
     Active Substance: LIDOCAINE\MENTHOL
     Dates: start: 20190115, end: 20190313

REACTIONS (1)
  - Application site burn [None]

NARRATIVE: CASE EVENT DATE: 20190312
